FAERS Safety Report 5662375-5 (Version None)
Quarter: 2008Q1

REPORT INFORMATION
  Report Type: 
  Country: None (occurrence: None)
  Receive Date: 20080310
  Receipt Date: 20080229
  Transmission Date: 20080703
  Serious: Yes (Death, Other)
  Sender: FDA-Public Use
  Company Number: JPI-P-003116

PATIENT
  Age: 38 Year
  Sex: Female

DRUGS (1)
  1. XYREM [Suspect]
     Indication: DRUG USE FOR UNKNOWN INDICATION
     Dosage: 18 GM (9 GM,2 IN 1 D), ORAL : ORAL
     Route: 048
     Dates: start: 20050101

REACTIONS (1)
  - DRUG LEVEL INCREASED [None]
